FAERS Safety Report 7286273-9 (Version None)
Quarter: 2011Q1

REPORT INFORMATION
  Report Type: 
  Country: None (occurrence: None)
  Receive Date: 20110210
  Receipt Date: 20110207
  Transmission Date: 20110831
  Serious: Yes (Death, Hospitalization)
  Sender: FDA-Public Use
  Company Number: PHHY2010US80941

PATIENT
  Sex: Female
  Weight: 134 kg

DRUGS (1)
  1. AFINITOR [Suspect]
     Indication: METASTATIC RENAL CELL CARCINOMA
     Dosage: 5 MG, QD
     Route: 048
     Dates: start: 20090801, end: 20100401

REACTIONS (1)
  - NEOPLASM MALIGNANT [None]
